FAERS Safety Report 8036858-7 (Version None)
Quarter: 2012Q1

REPORT INFORMATION
  Report Type: 
  Country: None (occurrence: None)
  Receive Date: 20120111
  Receipt Date: 20120106
  Transmission Date: 20120608
  Serious: No
  Sender: FDA-Public Use
  Company Number: US-PFIZER INC-2011305019

PATIENT
  Age: 63 Year
  Sex: Female

DRUGS (5)
  1. EPINEPHRINE [Suspect]
     Dosage: UNK
  2. THEO-DUR [Suspect]
  3. PRIMATENE MIST [Concomitant]
  4. VENTOLIN [Concomitant]
     Indication: ASTHMA
     Dosage: UNK
  5. PRIMATENE MIST [Suspect]
     Dosage: UNK

REACTIONS (1)
  - DRUG INEFFECTIVE [None]
